FAERS Safety Report 4502222-8 (Version None)
Quarter: 2004Q4

REPORT INFORMATION
  Report Type: 
  Country: None (occurrence: None)
  Receive Date: 20041109
  Receipt Date: 20041026
  Transmission Date: 20050328
  Serious: Yes (Life-Threatening, Hospitalization)
  Sender: FDA-Public Use
  Company Number: US_0410107513

PATIENT
  Age: 60 Year
  Sex: Male

DRUGS (3)
  1. CYMBALTA [Suspect]
     Indication: DEPRESSION
     Dosage: 60 MG/1 DAY
  2. METFORMIN [Concomitant]
  3. GLYBURIDE [Concomitant]

REACTIONS (10)
  - ANOREXIA [None]
  - BULIMIA NERVOSA [None]
  - CONFUSIONAL STATE [None]
  - DIALYSIS [None]
  - GAIT DISTURBANCE [None]
  - HICCUPS [None]
  - HYPOGLYCAEMIA [None]
  - NAUSEA [None]
  - NEPHRITIS INTERSTITIAL [None]
  - RENAL FAILURE ACUTE [None]
